FAERS Safety Report 4428501-0 (Version None)
Quarter: 2004Q3

REPORT INFORMATION
  Report Type: 
  Country: None (occurrence: None)
  Receive Date: 20040816
  Receipt Date: 20040803
  Transmission Date: 20050211
  Serious: Yes (Hospitalization)
  Sender: FDA-Public Use
  Company Number: HQWYE991812JUL04

PATIENT
  Age: 49 Year
  Sex: Female

DRUGS (2)
  1. RAPAMUNE [Suspect]
     Indication: PROPHYLAXIS AGAINST TRANSPLANT REJECTION
     Dosage: 2 MG 1X PER 1 DAY, UNKNOWN
     Dates: start: 20040211
  2. PROGRAF [Concomitant]

REACTIONS (3)
  - CELLULITIS [None]
  - GOUT [None]
  - WHITE BLOOD CELL COUNT DECREASED [None]
